FAERS Safety Report 6394133-0 (Version None)
Quarter: 2009Q4

REPORT INFORMATION
  Report Type: 
  Country: None (occurrence: None)
  Receive Date: 20091008
  Receipt Date: 20091002
  Transmission Date: 20100525
  Serious: Yes (Other)
  Sender: FDA-Public Use
  Company Number: HQWYE510823MAY06

PATIENT
  Sex: Female

DRUGS (4)
  1. PREMARIN [Suspect]
  2. MEDROXYPROGESTERONE [Suspect]
  3. ESTRACE [Suspect]
  4. PROVERA [Suspect]

REACTIONS (1)
  - CONTRALATERAL BREAST CANCER [None]
